FAERS Safety Report 4861901-3 (Version None)
Quarter: 2005Q4

REPORT INFORMATION
  Report Type: 
  Country: None (occurrence: None)
  Receive Date: 20051129
  Receipt Date: 20050829
  Transmission Date: 20060501
  Serious: Yes (Disabling)
  Sender: FDA-Public Use
  Company Number: WAES 0508USA04567

PATIENT
  Age: 68 Year
  Sex: Female

DRUGS (2)
  1. ZETIA [Suspect]
     Indication: HYPERLIPIDAEMIA
     Dosage: 10MG, DAILY, PO
     Route: 048
     Dates: start: 20050801, end: 20050820
  2. ZOCOR [Concomitant]

REACTIONS (1)
  - HYPERSENSITIVITY [None]
